FAERS Safety Report 5778014-9 (Version None)
Quarter: 2008Q2

REPORT INFORMATION
  Report Type: 
  Country: None (occurrence: None)
  Receive Date: 20080619
  Receipt Date: 20080610
  Transmission Date: 20081010
  Serious: Yes (Life-Threatening)
  Sender: FDA-Public Use
  Company Number: FI-BRISTOL-MYERS SQUIBB COMPANY-14231740

PATIENT
  Age: 64 Year
  Sex: Female

DRUGS (4)
  1. IFOSFAMIDE [Suspect]
     Indication: CENTRAL NERVOUS SYSTEM LYMPHOMA
     Route: 042
     Dates: start: 20080603, end: 20080605
  2. DEPOCYT [Suspect]
     Indication: CENTRAL NERVOUS SYSTEM LYMPHOMA
     Route: 037
     Dates: start: 20080603, end: 20080603
  3. DEXAMETHASONE TAB [Concomitant]
     Indication: CENTRAL NERVOUS SYSTEM LYMPHOMA
     Route: 048
     Dates: start: 20080603
  4. TREXAN (ORION) [Concomitant]
     Indication: CENTRAL NERVOUS SYSTEM LYMPHOMA
     Dosage: 25MG/ML SOLUTION FOR INJECTION,1 DOSAGE FORM = 5G/M2
     Route: 042
     Dates: start: 20080602

REACTIONS (4)
  - DEPRESSED LEVEL OF CONSCIOUSNESS [None]
  - DYSPNOEA [None]
  - GENERAL PHYSICAL HEALTH DETERIORATION [None]
  - PYREXIA [None]
